FAERS Safety Report 8334000-6 (Version None)
Quarter: 2012Q1

REPORT INFORMATION
  Report Type: 
  Country: None (occurrence: None)
  Receive Date: 20120328
  Receipt Date: 20110126
  Transmission Date: 20120608
  Serious: Yes (Other)
  Sender: FDA-Public Use
  Company Number: PHHY2011US07152

PATIENT
  Sex: Female

DRUGS (9)
  1. CORCEIG (CORCEIG) [Concomitant]
  2. AMBIEN [Concomitant]
  3. VALTURNA [Suspect]
     Dosage: 150 MG ALIS AND 160 MG VALS, AFTER BREAKFAST, ORAL
     Route: 048
  4. SYNTHROID [Concomitant]
  5. ACETAMINOPHEN [Concomitant]
  6. ZOLOFT [Concomitant]
  7. CRESTOR [Concomitant]
  8. NEXIUM [Concomitant]
  9. XANAX [Concomitant]

REACTIONS (3)
  - BLOOD PRESSURE DECREASED [None]
  - RHINORRHOEA [None]
  - DIZZINESS [None]
